FAERS Safety Report 12706507 (Version 4)
Quarter: 2016Q4

REPORT INFORMATION
  Report Type: Spontaneous
  Country: US (occurrence: US)
  Receive Date: 20160901
  Receipt Date: 20161129
  Transmission Date: 20170207
  Serious: No
  Sender: FDA-Public Use
  Company Number: US-PFIZER INC-2016408757

PATIENT
  Age: 69 Year
  Sex: Male
  Weight: 70 kg

DRUGS (1)
  1. LIPITOR [Suspect]
     Active Substance: ATORVASTATIN CALCIUM
     Indication: BLOOD CHOLESTEROL ABNORMAL
     Dosage: 10 MG, 1X/DAY, (EVERY EVENING)
     Route: 048
     Dates: start: 20160810, end: 20160813

REACTIONS (6)
  - Gait disturbance [Recovering/Resolving]
  - Muscular weakness [Not Recovered/Not Resolved]
  - Insomnia [Recovering/Resolving]
  - Blood creatine phosphokinase increased [Unknown]
  - Pain [Recovering/Resolving]
  - Myalgia [Recovering/Resolving]

NARRATIVE: CASE EVENT DATE: 20160814
